FAERS Safety Report 25717385 (Version 2)
Quarter: 2025Q3

REPORT INFORMATION
  Report Type: Spontaneous
  Country: US (occurrence: US)
  Receive Date: 20250822
  Receipt Date: 20250827
  Transmission Date: 20251021
  Serious: Yes (Life-Threatening, Hospitalization)
  Sender: PFIZER
  Company Number: US-MLMSERVICE-20250813-PI611404-00045-1

PATIENT
  Age: 1 Day
  Sex: Female

DRUGS (1)
  1. ALPROSTADIL [Suspect]
     Active Substance: ALPROSTADIL
     Indication: Patent ductus arteriosus

REACTIONS (2)
  - Oxygen saturation decreased [Recovering/Resolving]
  - Infantile apnoea [Recovering/Resolving]
